FAERS Safety Report 25330830 (Version 2)
Quarter: 2025Q2

REPORT INFORMATION
  Report Type: Spontaneous
  Country: US (occurrence: US)
  Receive Date: 20250519
  Receipt Date: 20250630
  Transmission Date: 20250716
  Serious: No
  Sender: BRAEBURN PHARMACEUTICALS
  Company Number: US-BRAEBURN PHARMACEUTICALS-US-BRA-25-000417

PATIENT
  Age: 43 Year
  Sex: Female
  Weight: 68.027 kg

DRUGS (2)
  1. BRIXADI [Suspect]
     Active Substance: BUPRENORPHINE
     Indication: Dependence
     Dosage: 64 MILLIGRAM, (EVERY 30 DAYS)
     Route: 058
     Dates: start: 20250404, end: 2025
  2. BRIXADI [Suspect]
     Active Substance: BUPRENORPHINE
     Dosage: 64 MILLIGRAM, (EVERY 30 DAYS)
     Route: 058
     Dates: start: 20250620

REACTIONS (2)
  - Drug withdrawal syndrome [Unknown]
  - Inappropriate schedule of product administration [Unknown]

NARRATIVE: CASE EVENT DATE: 20250601
